FAERS Safety Report 15005828 (Version 1)
Quarter: 2018Q2

REPORT INFORMATION
  Report Type: Spontaneous
  Country: US (occurrence: US)
  Receive Date: 20180613
  Receipt Date: 20180613
  Transmission Date: 20180711
  Serious: No
  Sender: FDA-Public Use
  Company Number: US-MYLANLABS-2018M1032688

PATIENT

DRUGS (3)
  1. FENTANYL TRANSDERMAL SYSTEM [Suspect]
     Active Substance: FENTANYL
     Indication: PAIN
     Dosage: UNK
     Route: 062
  2. ASKINA DERM FILM DRESSING [Suspect]
     Active Substance: POLYURETHANE
     Indication: PAIN
     Dosage: UNK
  3. ASKINA DERM FILM DRESSING [Suspect]
     Active Substance: POLYURETHANE
     Dosage: UNK
     Route: 062

REACTIONS (8)
  - Application site dryness [Recovered/Resolved]
  - Application site scab [Recovered/Resolved]
  - Application site erythema [Recovering/Resolving]
  - Application site vesicles [Recovered/Resolved]
  - Product quality issue [Unknown]
  - Product administered at inappropriate site [Unknown]
  - Application site rash [Recovered/Resolved]
  - Application site pruritus [Recovered/Resolved]
